FAERS Safety Report 6681285-8 (Version None)
Quarter: 2010Q2

REPORT INFORMATION
  Report Type: 
  Country: None (occurrence: None)
  Receive Date: 20100414
  Receipt Date: 20100402
  Transmission Date: 20101027
  Serious: Yes (Hospitalization)
  Sender: FDA-Public Use
  Company Number: US-ROCHE-696851

PATIENT

DRUGS (3)
  1. BEVACIZUMAB [Suspect]
     Indication: NON-SMALL CELL LUNG CANCER
     Dosage: OVER 30-90 MIN ON DAY 1. AFTER 4 CYCLES; OVER 30-90 MIN OFDAY 1 OF EVERY 3 WEEKS UPTO 1 YEAR
     Route: 042
     Dates: start: 20091105
  2. PEMETREXED [Suspect]
     Indication: NON-SMALL CELL LUNG CANCER
     Dosage: OVER 10 MINS ON DAY 1.
     Route: 042
     Dates: start: 20091105
  3. CISPLATIN [Suspect]
     Indication: NON-SMALL CELL LUNG CANCER
     Dosage: OVER 60 MINS ON DAY 1
     Route: 042
     Dates: start: 20091105

REACTIONS (2)
  - HAEMOGLOBIN DECREASED [None]
  - MUSCULAR WEAKNESS [None]
